FAERS Safety Report 11176310 (Version 2)
Quarter: 2015Q2

REPORT INFORMATION
  Report Type: Spontaneous
  Country: FR (occurrence: FR)
  Receive Date: 20150610
  Receipt Date: 20150616
  Transmission Date: 20150821
  Serious: Yes (Hospitalization)
  Sender: FDA-Public Use
  Company Number: PHHY2015FR068095

PATIENT
  Age: 29 Year
  Sex: Female

DRUGS (4)
  1. IBUPROFEN. [Suspect]
     Active Substance: IBUPROFEN
     Indication: PRODUCT USED FOR UNKNOWN INDICATION
     Dosage: 400 MG, QID
     Route: 048
     Dates: start: 20150413, end: 20150415
  2. VOLTARENE [Suspect]
     Active Substance: DICLOFENAC SODIUM
     Dosage: 2 DF, BID (75 MG)
     Route: 048
     Dates: start: 20150416, end: 20150418
  3. PROFENID [Suspect]
     Active Substance: KETOPROFEN
     Indication: PRODUCT USED FOR UNKNOWN INDICATION
     Dosage: 100 MG, UNK
     Route: 065
  4. VOLTARENE [Suspect]
     Active Substance: DICLOFENAC SODIUM
     Indication: PRODUCT USED FOR UNKNOWN INDICATION
     Dosage: 1 DF, UNK (75 MG)
     Route: 065

REACTIONS (1)
  - Fasciitis [Recovered/Resolved]

NARRATIVE: CASE EVENT DATE: 20150420
